FAERS Safety Report 6102373-0 (Version None)
Quarter: 2009Q1

REPORT INFORMATION
  Report Type: 
  Country: None (occurrence: None)
  Receive Date: 20090304
  Receipt Date: 20090220
  Transmission Date: 20090719
  Serious: Yes (Other)
  Sender: FDA-Public Use
  Company Number: FR-ROCHE-616270

PATIENT
  Sex: Male

DRUGS (2)
  1. CAPECITABINE [Suspect]
     Indication: COLORECTAL CANCER
     Route: 048
     Dates: start: 20080424
  2. OXALIPLATINE [Suspect]
     Indication: COLORECTAL CANCER
     Route: 042
     Dates: start: 20080424

REACTIONS (2)
  - FISTULA [None]
  - ILL-DEFINED DISORDER [None]
